FAERS Safety Report 4385331-6 (Version None)
Quarter: 2004Q2

REPORT INFORMATION
  Report Type: 
  Country: None (occurrence: None)
  Receive Date: 20040622
  Receipt Date: 20040610
  Transmission Date: 20050107
  Serious: Yes (Hospitalization)
  Sender: FDA-Public Use
  Company Number: GB-JNJFOC-20040602734

PATIENT
  Age: 32 Year
  Sex: Female

DRUGS (7)
  1. REMICADE [Suspect]
     Indication: PSORIATIC ARTHROPATHY
     Dosage: 250 MG, INTRAVENOUS
     Route: 042
     Dates: start: 20021030, end: 20040106
  2. METHOTREXATE [Concomitant]
  3. PREDNISOLONE [Concomitant]
  4. FOLIC ACID [Concomitant]
  5. INDOMETHACIN [Concomitant]
  6. PARACETAMOL (PARACETAMOL) [Concomitant]
  7. MICROGYNON (EUGYNON) [Concomitant]

REACTIONS (2)
  - POST PROCEDURAL HAEMORRHAGE [None]
  - SMEAR CERVIX ABNORMAL [None]
